FAERS Safety Report 14347409 (Version 1)
Quarter: 2018Q1

REPORT INFORMATION
  Report Type: Spontaneous
  Country: US (occurrence: US)
  Receive Date: 20180102
  Receipt Date: 20180102
  Transmission Date: 20180509
  Serious: No
  Sender: FDA-Public Use
  Company Number: None

PATIENT
  Age: 69 Year
  Sex: Female
  Weight: 71.1 kg

DRUGS (15)
  1. LEVOTHYROXIN [Concomitant]
     Active Substance: LEVOTHYROXINE
  2. GABAPENTIN. [Concomitant]
     Active Substance: GABAPENTIN
  3. GARLIC. [Concomitant]
     Active Substance: GARLIC
  4. TRAMADOL. [Concomitant]
     Active Substance: TRAMADOL
  5. IRON [Concomitant]
     Active Substance: IRON
  6. CINNAMON. [Concomitant]
     Active Substance: CINNAMON
  7. TESTOSTERONE. [Concomitant]
     Active Substance: TESTOSTERONE
  8. MAGNESIUM [Concomitant]
     Active Substance: MAGNESIUM
  9. ECHINACEA [Concomitant]
     Active Substance: ECHINACEA, UNSPECIFIED
  10. CYCLOBENZAPRINE. [Concomitant]
     Active Substance: CYCLOBENZAPRINE
  11. HCTZ [Concomitant]
     Active Substance: HYDROCHLOROTHIAZIDE
  12. LOSARTAN. [Concomitant]
     Active Substance: LOSARTAN
  13. ESTRADIOL TRANSDERMAL SYSTEM, USP 0.05 MG/DAY [Suspect]
     Active Substance: ESTRADIOL
     Indication: HORMONE REPLACEMENT THERAPY
     Dosage: ?          QUANTITY:8 PATCH(ES);OTHER FREQUENCY:TWICE WEEKLY;?
     Route: 062
  14. CALCIUM [Concomitant]
     Active Substance: CALCIUM
  15. OMEPRAZOLE. [Concomitant]
     Active Substance: OMEPRAZOLE

REACTIONS (3)
  - Application site irritation [None]
  - Application site pruritus [None]
  - Application site erythema [None]

NARRATIVE: CASE EVENT DATE: 20170901
